FAERS Safety Report 17255767 (Version 2)
Quarter: 2020Q1

REPORT INFORMATION
  Report Type: Spontaneous
  Country: SE (occurrence: SE)
  Receive Date: 20200110
  Receipt Date: 20200121
  Transmission Date: 20200409
  Serious: No
  Sender: FDA-Public Use
  Company Number: SE-BEH-2019111046

PATIENT
  Sex: Female

DRUGS (1)
  1. HIZENTRA [Suspect]
     Active Substance: HUMAN IMMUNOGLOBULIN G
     Indication: INFECTION SUSCEPTIBILITY INCREASED
     Route: 058

REACTIONS (4)
  - Injection site swelling [Recovered/Resolved]
  - Product use in unapproved indication [Unknown]
  - Injection site erythema [Recovered/Resolved]
  - No adverse event [Unknown]
